FAERS Safety Report 9466794 (Version 1)
Quarter: 2013Q3

REPORT INFORMATION
  Report Type: Spontaneous
  Country: US (occurrence: US)
  Receive Date: 20130820
  Receipt Date: 20130820
  Transmission Date: 20140515
  Serious: No
  Sender: FDA-Public Use
  Company Number: US-PFIZER INC-2013240683

PATIENT
  Age: 44 Year
  Sex: Female
  Weight: 90.7 kg

DRUGS (4)
  1. LYRICA [Suspect]
     Indication: FIBROMYALGIA
     Dosage: 50 MG, 2X/DAY
     Route: 048
  2. LYRICA [Suspect]
     Dosage: 150 MG(TWO CAPSULE OF 75MG TOGETHER), 2X/DAY
     Route: 048
     Dates: start: 20130810
  3. EFFEXOR [Concomitant]
     Indication: PANIC ATTACK
     Dosage: UNK
  4. KLONOPIN [Concomitant]
     Indication: CONVULSION
     Dosage: UNK

REACTIONS (3)
  - Drug ineffective [Unknown]
  - Pain in extremity [Recovering/Resolving]
  - Movement disorder [Recovering/Resolving]
